FAERS Safety Report 20321501 (Version 1)
Quarter: 2022Q1

REPORT INFORMATION
  Report Type: Spontaneous
  Country: US (occurrence: None)
  Receive Date: 20220110
  Receipt Date: 20220110
  Transmission Date: 20220423
  Serious: No
  Sender: FDA-Public Use
  Company Number: None

PATIENT
  Sex: Male
  Weight: 92.99 kg

DRUGS (39)
  1. CAPECITABINE [Suspect]
     Active Substance: CAPECITABINE
     Indication: Appendix cancer
     Dosage: FREQUENCY : TWICE A DAY;?
     Route: 048
  2. ALBUTEROL [Concomitant]
  3. ASPIRIN [Concomitant]
  4. AZELASTINE [Concomitant]
  5. TUMS [Concomitant]
  6. SINEMET [Concomitant]
  7. VITAMIN D3 [Concomitant]
  8. VITAMIN B12 [Concomitant]
  9. DULOXETINE [Concomitant]
  10. LEXAPRO [Concomitant]
  11. FERROUS SULFATE [Concomitant]
  12. FLONASE [Concomitant]
  13. LASIX [Concomitant]
  14. LEVCETIRIZINE [Concomitant]
  15. LEVOTHYROXINE [Concomitant]
  16. LORAZEPAM [Concomitant]
  17. LOVASTATIN [Concomitant]
  18. METFORMIN [Concomitant]
  19. LOPRESSOR [Concomitant]
  20. MOMETASONE [Concomitant]
  21. CENTRUM SILVER [Concomitant]
  22. OXYCODONE [Concomitant]
  23. PEG 3350 [Concomitant]
     Active Substance: POLYETHYLENE GLYCOL 3350
  24. PROBIOTIC [Concomitant]
  25. SUDAFED [Concomitant]
  26. ROPINOROLE [Concomitant]
  27. SILVER SULFADIAZINE [Concomitant]
  28. SUCRALFATE [Concomitant]
  29. SUMTRIPTAN [Concomitant]
  30. TAMSULOSIN [Concomitant]
  31. CALCIUM CARBONATE [Concomitant]
  32. CARBIDOPA-LEVODOPA [Concomitant]
  33. ESCITALOPRAM [Concomitant]
  34. METOPROLOL [Concomitant]
  35. OXYCONTIN [Concomitant]
  36. PSEUDOEPHEDRINE [Concomitant]
  37. PSYLLIUM HUSK [Concomitant]
  38. FAMOTIDINE [Concomitant]
  39. ADDERALL [Concomitant]
     Active Substance: AMPHETAMINE ASPARTATE\AMPHETAMINE SULFATE\DEXTROAMPHETAMINE SACCHARATE\DEXTROAMPHETAMINE SULFATE

REACTIONS (2)
  - Dizziness [None]
  - Loss of consciousness [None]
